FAERS Safety Report 8186342 (Version 7)
Quarter: 2012Q4

REPORT INFORMATION
  Report Type: 
  Country: US (occurrence: US)
  Receive Date: 20111018
  Receipt Date: 20121015
  Transmission Date: 20130627
  Serious: Yes (Hospitalization, Other)
  Sender: FDA-Public Use
  Company Number: US-009507513-1110USA02003

PATIENT

DRUGS (15)
  1. FOSAMAX [Suspect]
     Indication: INSOMNIA
     Dosage: 10 mg, qd
     Route: 048
     Dates: start: 199911
  2. FOSAMAX [Suspect]
     Dosage: 70 mg, QW
     Route: 048
     Dates: start: 20010904
  3. BONIVA [Concomitant]
     Dosage: 150 mg, QM
     Route: 048
     Dates: start: 2009, end: 201107
  4. BONIVA [Concomitant]
     Indication: OSTEOPOROSIS
  5. LIPITOR [Concomitant]
     Indication: HYPERCHOLESTEROLAEMIA
  6. LIPITOR [Concomitant]
     Dates: start: 19920101
  7. EXCEDRIN PM (ACETAMINOPHEN (+) DIPHENHYDRAMINE CITRATE) [Concomitant]
     Indication: INSOMNIA
  8. EXCEDRIN PM (ACETAMINOPHEN (+) DIPHENHYDRAMINE CITRATE) [Concomitant]
     Dates: start: 19970101
  9. RESLIN TABLETS 25 [Concomitant]
     Indication: INSOMNIA
  10. RESLIN TABLETS 25 [Concomitant]
     Dates: start: 20020314
  11. AMBIEN [Concomitant]
     Dosage: 10prn
  12. AMBIEN [Concomitant]
     Indication: INSOMNIA
  13. TRAZODONE HYDROCHLORIDE [Concomitant]
     Indication: INSOMNIA
     Dosage: 50 mg, qpm
     Route: 048
  14. TRAZODONE HYDROCHLORIDE [Concomitant]
     Dosage: 100 mg, qpm
     Route: 048
  15. XANAX [Concomitant]
     Indication: INSOMNIA
     Dosage: 0.25 mg, tid
     Route: 048

REACTIONS (67)
  - Femur fracture [Unknown]
  - Sinus operation [Unknown]
  - Thyroidectomy [Unknown]
  - Coronary arterial stent insertion [Unknown]
  - Open reduction of fracture [Unknown]
  - Confusional state [Unknown]
  - Delirium [Recovered/Resolved]
  - Dementia [Unknown]
  - Lower respiratory tract infection [Unknown]
  - Atrial fibrillation [Unknown]
  - Thyroid disorder [Unknown]
  - Haemorrhagic anaemia [Unknown]
  - Cardiac failure congestive [Unknown]
  - Foot operation [Unknown]
  - Depression [Unknown]
  - Anxiety [Unknown]
  - Suicidal ideation [Unknown]
  - Tooth disorder [Unknown]
  - Osteoarthritis [Unknown]
  - Large intestine polyp [Unknown]
  - Fall [Unknown]
  - Osteomyelitis [Unknown]
  - Herpes zoster [Unknown]
  - Diverticulitis [Unknown]
  - Fatigue [Unknown]
  - Dyspnoea [Unknown]
  - Pollakiuria [Unknown]
  - Stress [Unknown]
  - Hyperglycaemia [Unknown]
  - Nervousness [Unknown]
  - Cellulitis [Unknown]
  - Nocturia [Unknown]
  - Hypothyroidism [Unknown]
  - Cardiovascular disorder [Unknown]
  - Sciatica [Unknown]
  - Cardiac failure chronic [Not Recovered/Not Resolved]
  - Joint contracture [Unknown]
  - Cyst [Unknown]
  - Ischaemic cardiomyopathy [Unknown]
  - Benign bone neoplasm [Unknown]
  - Respiratory tract congestion [Unknown]
  - Ankle fracture [Unknown]
  - Diverticulum [Unknown]
  - Dyslipidaemia [Unknown]
  - Impaired healing [Unknown]
  - Cardiac failure congestive [Not Recovered/Not Resolved]
  - Muscular weakness [Unknown]
  - Osteopenia [Unknown]
  - Osteomyelitis [Unknown]
  - Sinusitis [Unknown]
  - Macular degeneration [Unknown]
  - Hyperthyroidism [Unknown]
  - Mental status changes [Unknown]
  - Wheezing [Unknown]
  - Amnesia [Unknown]
  - Cough [Unknown]
  - Dementia Alzheimer^s type [Unknown]
  - Tension headache [Unknown]
  - Hypertensive heart disease [Unknown]
  - Insomnia [Unknown]
  - Malaise [Unknown]
  - Myalgia [Unknown]
  - Musculoskeletal pain [Unknown]
  - Gastrooesophageal reflux disease [Unknown]
  - Drug ineffective [Unknown]
  - Chronic obstructive pulmonary disease [Unknown]
  - Kyphosis [Unknown]
